FAERS Safety Report 7072631-4 (Version None)
Quarter: 2010Q4

REPORT INFORMATION
  Report Type: 
  Country: None (occurrence: None)
  Receive Date: 20101028
  Receipt Date: 20101028
  Transmission Date: 20110411
  Serious: Yes (Hospitalization, Disabling)
  Sender: FDA-Public Use
  Company Number: None

PATIENT
  Sex: Female
  Weight: 60.3284 kg

DRUGS (2)
  1. BONIVA [Suspect]
     Indication: OSTEOPENIA
     Dosage: 150 MG MONTHLY PO
     Route: 048
     Dates: start: 20060101, end: 20100101
  2. FOSAMAX [Suspect]
     Indication: OSTEOPENIA
     Dates: start: 20000101, end: 20060101

REACTIONS (2)
  - FALL [None]
  - FEMUR FRACTURE [None]
